FAERS Safety Report 8107869-8 (Version None)
Quarter: 2012Q1

REPORT INFORMATION
  Report Type: 
  Country: None (occurrence: None)
  Receive Date: 20120202
  Receipt Date: 20120126
  Transmission Date: 20120608
  Serious: Yes (Hospitalization)
  Sender: FDA-Public Use
  Company Number: US-VERTEX PHARMACEUTICALS INC.-AE-2012-001500

PATIENT
  Sex: Male

DRUGS (6)
  1. INCIVEK [Suspect]
     Indication: HEPATITIS C
     Route: 048
     Dates: start: 20110807, end: 20111030
  2. PEGASYS [Concomitant]
     Indication: HEPATITIS C
     Route: 058
     Dates: start: 20110807
  3. RIBAVIRIN [Concomitant]
  4. RIBAVIRIN [Concomitant]
     Indication: HEPATITIS C
     Route: 048
     Dates: start: 20110807
  5. RIBAVIRIN [Concomitant]
  6. PEGASYS [Concomitant]
     Route: 058

REACTIONS (10)
  - ANAEMIA [None]
  - EYE BURNS [None]
  - FATIGUE [None]
  - DIARRHOEA [None]
  - HYPOACUSIS [None]
  - ORAL PAIN [None]
  - INSOMNIA [None]
  - ALOPECIA [None]
  - CHOLECYSTITIS [None]
  - HAEMORRHOIDS [None]
